FAERS Safety Report 24576241 (Version 1)
Quarter: 2024Q4

REPORT INFORMATION
  Report Type: Spontaneous
  Country: US (occurrence: None)
  Receive Date: 20241103
  Receipt Date: 20241103
  Transmission Date: 20250115
  Serious: Yes (Disabling, Other)
  Sender: Public
  Company Number: None

PATIENT
  Age: 92 Year
  Sex: Female
  Weight: 53.1 kg

DRUGS (2)
  1. CALQUENCE [Suspect]
     Active Substance: ACALABRUTINIB
     Indication: Lymphocytic lymphoma
     Dosage: 100 MG DAILY ORAL ?
     Route: 048
     Dates: start: 20240805
  2. CALQUENCE [Suspect]
     Active Substance: ACALABRUTINIB
     Indication: Chronic lymphocytic leukaemia

REACTIONS (3)
  - Glaucoma [None]
  - Therapy interrupted [None]
  - Anxiety [None]

NARRATIVE: CASE EVENT DATE: 20241023
